FAERS Safety Report 11999979 (Version 2)
Quarter: 2016Q1

REPORT INFORMATION
  Report Type: Spontaneous
  Country: JP (occurrence: JP)
  Receive Date: 20160204
  Receipt Date: 20160208
  Transmission Date: 20160526
  Serious: Yes (Other)
  Sender: FDA-Public Use
  Company Number: JP-009507513-1602JPN000592

PATIENT
  Age: 17 Year
  Sex: Female

DRUGS (6)
  1. DOPASTON [Concomitant]
     Active Substance: LEVODOPA
     Dosage: DAILY DOSAGE UNKNOWN
     Route: 048
  2. BELSOMRA [Suspect]
     Active Substance: SUVOREXANT
     Dosage: DAILY DOSAGE UNKNOWN
     Route: 048
  3. ALEVIATIN [Concomitant]
     Active Substance: PHENYTOIN SODIUM
     Dosage: DAILY DOSAGE UNKNOWN
     Route: 048
  4. PHENOBAL [Concomitant]
     Active Substance: PHENOBARBITAL
     Dosage: DAILY DOSAGE UNKNOWN
     Route: 048
  5. RUFINAMIDE [Concomitant]
     Active Substance: RUFINAMIDE
     Dosage: DAILY DOSAGE UNKNOWN
     Route: 048
  6. EPILEO PETITMAL [Concomitant]
     Dosage: DAILY DOSAGE UNKNOWN
     Route: 048

REACTIONS (1)
  - Epilepsy [Unknown]
